FAERS Safety Report 6564976-9 (Version None)
Quarter: 2010Q1

REPORT INFORMATION
  Report Type: 
  Country: None (occurrence: None)
  Receive Date: 20100201
  Receipt Date: 20100118
  Transmission Date: 20100710
  Serious: Yes (Life-Threatening, Hospitalization)
  Sender: FDA-Public Use
  Company Number: NO-BAYER-201013585GPV

PATIENT
  Age: 20 Year
  Sex: Female

DRUGS (1)
  1. YASMIN [Suspect]
     Indication: CONTRACEPTION
     Dosage: TOTAL DAILY DOSE: 30 ?G
     Route: 048

REACTIONS (8)
  - AKATHISIA [None]
  - CARDIAC ARREST [None]
  - CHEST PAIN [None]
  - CIRCULATORY COLLAPSE [None]
  - DYSPNOEA [None]
  - PALLOR [None]
  - PULMONARY EMBOLISM [None]
  - SYNCOPE [None]
